FAERS Safety Report 6305587-X (Version None)
Quarter: 2009Q3

REPORT INFORMATION
  Report Type: 
  Country: None (occurrence: None)
  Receive Date: 20090807
  Receipt Date: 20090724
  Transmission Date: 20100115
  Serious: Yes (Hospitalization)
  Sender: FDA-Public Use
  Company Number: 8049690

PATIENT
  Age: 50 Year
  Sex: Male

DRUGS (14)
  1. KEPPRA [Suspect]
     Dosage: PO
     Route: 048
     Dates: start: 20080321, end: 20080408
  2. MOPRAL /00661201 [Suspect]
     Dosage: PO
     Route: 048
     Dates: start: 20080307, end: 20080322
  3. MOPRAL /00661201/ [Suspect]
     Dosage: PO
     Route: 048
     Dates: start: 20080515, end: 20080520
  4. INEXIUM [Suspect]
     Dosage: PO
     Route: 048
     Dates: start: 20080322, end: 20080407
  5. INEXIUM /01479302 [Suspect]
     Dosage: PO
     Route: 048
     Dates: start: 20080520, end: 20080522
  6. VANCOMYCIN [Suspect]
     Indication: INFECTION
     Dosage: IV
     Route: 042
     Dates: start: 20080309, end: 20080326
  7. LASILIX /00032601/ [Suspect]
     Dosage: IV
     Route: 042
     Dates: start: 20080309, end: 20080317
  8. TAHOR [Suspect]
     Dosage: PO
     Route: 048
     Dates: start: 20080312, end: 20080408
  9. ACTRAPID [Concomitant]
  10. HYPNOVEL [Concomitant]
  11. KETALAR [Concomitant]
  12. TRIFLUCAN [Concomitant]
  13. HEPARIN [Concomitant]
  14. IVANZ [Concomitant]

REACTIONS (11)
  - ABDOMINAL PAIN [None]
  - ASCITES [None]
  - CONVULSION [None]
  - DELIRIUM [None]
  - DRUG RASH WITH EOSINOPHILIA AND SYSTEMIC SYMPTOMS [None]
  - GASTROENTERITIS ESCHERICHIA COLI [None]
  - HEPATIC HAEMORRHAGE [None]
  - LUNG DISORDER [None]
  - PERITONEAL DIALYSIS [None]
  - RENAL FAILURE [None]
  - SHOCK [None]
